FAERS Safety Report 13055437 (Version 1)
Quarter: 2016Q4

REPORT INFORMATION
  Report Type: Spontaneous
  Country: JP (occurrence: JP)
  Receive Date: 20161222
  Receipt Date: 20161222
  Transmission Date: 20170207
  Serious: Yes (Other)
  Sender: FDA-Public Use
  Company Number: JP-MYLANLABS-2016M1056584

PATIENT

DRUGS (13)
  1. OXALIPLATIN. [Concomitant]
     Active Substance: OXALIPLATIN
     Indication: METASTASES TO LIVER
     Dosage: 85 MG/M2
     Route: 065
  2. OXALIPLATIN. [Concomitant]
     Active Substance: OXALIPLATIN
     Dosage: 400 MG/M2
     Route: 065
  3. ANTITHROMBIN III [Concomitant]
     Active Substance: ANTITHROMBIN III HUMAN
     Indication: PULMONARY EMBOLISM
     Route: 065
  4. FLUOROURACIL. [Interacting]
     Active Substance: FLUOROURACIL
     Indication: METASTASES TO LIVER
     Dosage: 400 MG/M2 ON DAY 1
     Route: 065
  5. WARFARIN [Suspect]
     Active Substance: WARFARIN
     Indication: PULMONARY EMBOLISM
     Dosage: 3.5MG TO 4.5MG
     Route: 065
  6. WARFARIN [Interacting]
     Active Substance: WARFARIN
     Dosage: 3.5MG TO 4.5MG
     Route: 065
  7. PANITUMUMAB [Concomitant]
     Active Substance: PANITUMUMAB
     Indication: METASTASES TO LIVER
     Route: 065
  8. APREPITANT. [Interacting]
     Active Substance: APREPITANT
     Route: 065
  9. HEPARIN [Concomitant]
     Active Substance: HEPARIN SODIUM
     Indication: PULMONARY EMBOLISM
     Route: 065
  10. FLUOROURACIL. [Interacting]
     Active Substance: FLUOROURACIL
     Dosage: OVER 46 HOURS
     Route: 041
  11. WARFARIN [Interacting]
     Active Substance: WARFARIN
     Indication: DEEP VEIN THROMBOSIS
     Dosage: 3.5MG TO 5.0MG
     Route: 065
  12. APREPITANT. [Interacting]
     Active Substance: APREPITANT
     Indication: NAUSEA
     Dosage: 125 MG ONCE PER DAY AT THE FIRST DAY OF CHEMOTHERAPY
     Route: 065
  13. WARFARIN [Interacting]
     Active Substance: WARFARIN
     Dosage: 3.5MG TO 5.0MG
     Route: 065

REACTIONS (2)
  - International normalised ratio increased [Recovered/Resolved]
  - Drug interaction [Recovered/Resolved]
